FAERS Safety Report 10665556 (Version 1)
Quarter: 2014Q4

REPORT INFORMATION
  Report Type: Other
  Country: US (occurrence: US)
  Receive Date: 20141219
  Receipt Date: 20141219
  Transmission Date: 20150529
  Serious: Yes (Other)
  Sender: FDA-Public Use
  Company Number: US-SHIRE-US201408936

PATIENT
  Sex: Female

DRUGS (1)
  1. VPRIV [Suspect]
     Active Substance: VELAGLUCERASE ALFA
     Indication: GAUCHER^S DISEASE
     Dosage: 7600 UNITS (19 VIALS), 1X/2WKS (BI-MONTHLY)
     Route: 041
     Dates: start: 20100430

REACTIONS (2)
  - Blood calcium increased [Unknown]
  - Hyperparathyroidism [Not Recovered/Not Resolved]
